FAERS Safety Report 7022907-1 (Version None)
Quarter: 2010Q3

REPORT INFORMATION
  Report Type: 
  Country: None (occurrence: None)
  Receive Date: 20100930
  Receipt Date: 20100924
  Transmission Date: 20110219
  Serious: Yes (Other)
  Sender: FDA-Public Use
  Company Number: US-PFIZER INC-2010122628

PATIENT
  Sex: Male

DRUGS (1)
  1. NORVASC [Suspect]
     Indication: CHEST PAIN
     Dosage: UNK

REACTIONS (1)
  - PROSTATE CANCER [None]
